FAERS Safety Report 16798112 (Version 1)
Quarter: 2019Q3

REPORT INFORMATION
  Report Type: Report from Study
  Country: CA (occurrence: CA)
  Receive Date: 20190912
  Receipt Date: 20190912
  Transmission Date: 20191005
  Serious: Yes (Hospitalization, Other)
  Sender: FDA-Public Use
  Company Number: CA-BRISTOL-MYERS SQUIBB COMPANY-BMS-2017-056843

PATIENT
  Age: 74 Year
  Sex: Female
  Weight: 45 kg

DRUGS (3)
  1. ABATACEPT [Suspect]
     Active Substance: ABATACEPT
     Indication: RHEUMATOID ARTHRITIS
     Dosage: 500 MG, Q4WK
     Route: 042
     Dates: start: 20170206
  2. ABATACEPT [Suspect]
     Active Substance: ABATACEPT
     Indication: PRODUCT USED FOR UNKNOWN INDICATION
     Dosage: 750 MG, Q4WK
     Route: 042
     Dates: start: 19720427
  3. LYRICA [Concomitant]
     Active Substance: PREGABALIN
     Indication: PRODUCT USED FOR UNKNOWN INDICATION
     Route: 065

REACTIONS (16)
  - Weight increased [Unknown]
  - Amnesia [Unknown]
  - Blood pressure decreased [Unknown]
  - Localised infection [Recovering/Resolving]
  - Cellulitis [Unknown]
  - Wound [Recovering/Resolving]
  - Eyelid ptosis [Unknown]
  - Adverse event [Unknown]
  - Myalgia [Not Recovered/Not Resolved]
  - Cough [Unknown]
  - Pain [Unknown]
  - Arthralgia [Recovering/Resolving]
  - Musculoskeletal stiffness [Unknown]
  - Injury [Not Recovered/Not Resolved]
  - Hypoaesthesia [Unknown]
  - Hypersensitivity [Unknown]

NARRATIVE: CASE EVENT DATE: 20160201
